FAERS Safety Report 6632140-0 (Version None)
Quarter: 2010Q1

REPORT INFORMATION
  Report Type: 
  Country: None (occurrence: None)
  Receive Date: 20100312
  Receipt Date: 20100304
  Transmission Date: 20100710
  Serious: Yes (Hospitalization)
  Sender: FDA-Public Use
  Company Number: US-BAXTER-2010BH002463

PATIENT
  Age: 62 Year
  Sex: Female
  Weight: 68 kg

DRUGS (7)
  1. DIANEAL [Suspect]
     Indication: PERITONEAL DIALYSIS
     Route: 033
  2. DAILY-VITE [Concomitant]
     Indication: RENAL FAILURE CHRONIC
     Route: 048
     Dates: start: 20091006
  3. ROCALTROL [Concomitant]
     Indication: RENAL FAILURE CHRONIC
     Route: 048
     Dates: start: 20090602
  4. ROCALTROL [Concomitant]
     Route: 048
     Dates: start: 20090602
  5. ASPIRIN [Concomitant]
     Indication: RENAL FAILURE CHRONIC
     Route: 048
     Dates: start: 20081015
  6. RENAGEL [Concomitant]
     Indication: HYPERPHOSPHATAEMIA
     Route: 048
     Dates: start: 20081015
  7. FISH OIL [Concomitant]
     Indication: DRUG USE FOR UNKNOWN INDICATION
     Route: 048
     Dates: start: 20081015

REACTIONS (4)
  - ABDOMINAL DISTENSION [None]
  - BIPOLAR DISORDER [None]
  - HYPERTENSION [None]
  - MANIA [None]
